FAERS Safety Report 5036046-2 (Version None)
Quarter: 2006Q2

REPORT INFORMATION
  Report Type: 
  Country: None (occurrence: None)
  Receive Date: 20060526
  Receipt Date: 20060406
  Transmission Date: 20061013
  Serious: Yes (Disabling)
  Sender: FDA-Public Use
  Company Number: WAES 0604USA01002

PATIENT
  Age: 51 Year
  Sex: Male

DRUGS (1)
  1. VYTORIN [Suspect]
     Dosage: 10-40 MG DAILY PO
     Route: 048
     Dates: start: 20060223

REACTIONS (1)
  - ARTHRALGIA [None]
